FAERS Safety Report 7620369-4 (Version None)
Quarter: 2011Q3

REPORT INFORMATION
  Report Type: 
  Country: None (occurrence: None)
  Receive Date: 20110718
  Receipt Date: 20110718
  Transmission Date: 20111222
  Serious: Yes (Death, Life-Threatening, Hospitalization, Disabling, Congenital Anomaly, Other)
  Sender: FDA-Public Use
  Company Number: None

PATIENT
  Age: 63 Year
  Sex: Male
  Weight: 81.646 kg

DRUGS (1)
  1. GLIMEPIRIDE [Suspect]
     Indication: DIABETES MELLITUS
     Dosage: 1
     Route: 048
     Dates: start: 20010107, end: 20110509

REACTIONS (5)
  - HEADACHE [None]
  - SUICIDAL IDEATION [None]
  - FATIGUE [None]
  - INSOMNIA [None]
  - BIPOLAR I DISORDER [None]
